FAERS Safety Report 10762086 (Version 1)
Quarter: 2015Q1

REPORT INFORMATION
  Report Type: Spontaneous
  Country: US (occurrence: None)
  Receive Date: 20150128
  Receipt Date: 20150128
  Transmission Date: 20150721
  Serious: Yes (Other)
  Sender: FDA-Public Use
  Company Number: 1368525

PATIENT
  Sex: Female

DRUGS (1)
  1. RITUXAN [Suspect]
     Active Substance: RITUXIMAB
     Indication: CHRONIC LYMPHOCYTIC LEUKAEMIA
     Dosage: 5 DOSES
     Route: 042

REACTIONS (7)
  - Pruritus [None]
  - Viral infection [None]
  - Rash pruritic [None]
  - Rash [None]
  - Skin exfoliation [None]
  - Oral pruritus [None]
  - Haemolytic anaemia [None]
